FAERS Safety Report 4430764-2 (Version None)
Quarter: 2004Q3

REPORT INFORMATION
  Report Type: 
  Country: None (occurrence: None)
  Receive Date: 20040818
  Receipt Date: 20040804
  Transmission Date: 20050211
  Serious: Yes (Hospitalization, Other)
  Sender: FDA-Public Use
  Company Number: JP_040804115

PATIENT
  Age: 61 Year
  Sex: Female
  Weight: 66 kg

DRUGS (9)
  1. VANCOMYCIN [Suspect]
  2. AMPHOTERICIN B [Concomitant]
  3. CILASTATIN W/IMIPENEM [Concomitant]
  4. ACYCLOVIR (ACICLOVIR EG) [Concomitant]
  5. FLUCONAZOLE [Concomitant]
  6. SULFONYLUREA [Concomitant]
  7. PREDNISOLONE [Concomitant]
  8. TACROLIMUS [Concomitant]
  9. MYCOPHENOLATE MOFETIL [Concomitant]

REACTIONS (7)
  - BLOOD POTASSIUM INCREASED [None]
  - DRUG LEVEL INCREASED [None]
  - FALL [None]
  - FOOT FRACTURE [None]
  - OSTEOPOROSIS [None]
  - RENAL IMPAIRMENT [None]
  - SPINAL COMPRESSION FRACTURE [None]
